FAERS Safety Report 4311229-5 (Version None)
Quarter: 2004Q1

REPORT INFORMATION
  Report Type: 
  Country: None (occurrence: None)
  Receive Date: 20040304
  Receipt Date: 20030812
  Transmission Date: 20041129
  Serious: No
  Sender: FDA-Public Use
  Company Number: US-BRISTOL-MYERS SQUIBB COMPANY-12353116

PATIENT
  Age: 54 Year
  Sex: Female
  Weight: 51 kg

DRUGS (4)
  1. TEQUIN [Suspect]
     Indication: SINUSITIS
     Route: 048
     Dates: start: 20030501, end: 20030601
  2. NYSTATIN OS [Suspect]
  3. DESYREL [Concomitant]
  4. AMOXICILLIN [Concomitant]
     Dates: start: 20030806, end: 20030811

REACTIONS (4)
  - DRUG INEFFECTIVE [None]
  - DYSGEUSIA [None]
  - ORAL CANDIDIASIS [None]
  - TOOTH DISORDER [None]
